FAERS Safety Report 20790442 (Version 1)
Quarter: 2022Q2

REPORT INFORMATION
  Report Type: Spontaneous
  Country: BE (occurrence: BE)
  Receive Date: 20220505
  Receipt Date: 20220505
  Transmission Date: 20220721
  Serious: Yes (Death, Other)
  Sender: FDA-Public Use
  Company Number: BE-AMGEN-BELSP2022074901

PATIENT

DRUGS (4)
  1. ADALIMUMAB [Suspect]
     Active Substance: ADALIMUMAB
     Indication: Crohn^s disease
     Route: 065
  2. ADALIMUMAB [Suspect]
     Active Substance: ADALIMUMAB
     Indication: Colitis ulcerative
  3. THIOPURINOL [Concomitant]
  4. METHOTREXATE [Concomitant]
     Active Substance: METHOTREXATE

REACTIONS (53)
  - Death [Fatal]
  - Haematological malignancy [Fatal]
  - Hypovolaemic shock [Fatal]
  - Completed suicide [Fatal]
  - Cardio-respiratory arrest [Fatal]
  - Sepsis [Fatal]
  - Metastatic neoplasm [Fatal]
  - Septic shock [Fatal]
  - Pneumonia [Fatal]
  - Cholangitis [Unknown]
  - Lymphadenitis [Unknown]
  - Prostatitis [Unknown]
  - Varicella zoster virus infection [Unknown]
  - Carcinoid tumour in the large intestine [Unknown]
  - Urogenital infection bacterial [Unknown]
  - Respiratory tract infection [Unknown]
  - Clostridium difficile infection [Unknown]
  - Cytomegalovirus colitis [Unknown]
  - Cytomegalovirus infection [Unknown]
  - Herpes virus infection [Unknown]
  - Pyrexia [Unknown]
  - Gastroenteritis [Unknown]
  - Renal abscess [Unknown]
  - Lower respiratory tract infection [Unknown]
  - Candida infection [Unknown]
  - Peritonitis [Unknown]
  - Peritonsillar abscess [Unknown]
  - Pyelonephritis [Unknown]
  - Arthritis bacterial [Unknown]
  - Skin infection [Unknown]
  - Upper respiratory tract infection [Unknown]
  - Urinary tract infection [Unknown]
  - Viral infection [Unknown]
  - Bladder cancer [Unknown]
  - Breast cancer [Unknown]
  - Oesophageal carcinoma [Unknown]
  - Gastric cancer [Unknown]
  - Anal cancer [Unknown]
  - Neoplasm [Unknown]
  - Lung neoplasm malignant [Unknown]
  - Malignant melanoma [Unknown]
  - Meningioma [Unknown]
  - Neuroendocrine tumour [Unknown]
  - Basal cell carcinoma [Unknown]
  - Squamous cell carcinoma of skin [Unknown]
  - Ovarian cancer [Unknown]
  - Prostate cancer [Unknown]
  - Renal cell carcinoma [Unknown]
  - Schwannoma [Unknown]
  - Thyroid cancer [Unknown]
  - Drug hypersensitivity [Unknown]
  - Psoriasis [Unknown]
  - Hypersensitivity [Unknown]
